FAERS Safety Report 4867304-X (Version None)
Quarter: 2005Q4

REPORT INFORMATION
  Report Type: 
  Country: None (occurrence: None)
  Receive Date: 20051228
  Receipt Date: 19991129
  Transmission Date: 20060501
  Serious: Yes (Life-Threatening, Hospitalization)
  Sender: FDA-Public Use
  Company Number: US-ROCHE-221936

PATIENT
  Age: 69 Year
  Sex: Male
  Weight: 50 kg

DRUGS (20)
  1. MYCOPHENOLATE MOFETIL [Suspect]
     Route: 065
     Dates: start: 19991125
  2. PLACEBO [Suspect]
     Route: 042
     Dates: start: 19991125, end: 19991127
  3. SOLU-MEDROL [Suspect]
     Route: 065
     Dates: start: 19991125
  4. CYCLOSPORINE [Suspect]
     Route: 065
  5. TRIDIL [Concomitant]
     Dosage: TITRATED DOSE.
     Dates: start: 19991125, end: 19991127
  6. DOPAMINE [Concomitant]
     Dates: start: 19991125
  7. NITRIC OXIDE [Concomitant]
     Route: 055
     Dates: start: 19991125, end: 19991126
  8. RAPAMYCIN [Concomitant]
     Dates: start: 19991128
  9. CARAFATE [Concomitant]
     Indication: TRANSPLANT
  10. NYSTATIN [Concomitant]
     Indication: TRANSPLANT
  11. VANCOMYCIN [Concomitant]
     Indication: TRANSPLANT
  12. DIGOXIN [Concomitant]
     Indication: TRANSPLANT
     Dosage: INTERMITTENT DOSING - INDIVIDUAL DOSES.
     Route: 042
     Dates: start: 19991125, end: 19991203
  13. METOPROLOL [Concomitant]
     Indication: TRANSPLANT
     Route: 042
  14. TYLENOL [Concomitant]
  15. MULTIPLE VITAMIN [Concomitant]
     Route: 048
  16. BACTRIM DS [Concomitant]
     Route: 048
  17. AFRIN [Concomitant]
  18. ALBUTEROL [Concomitant]
  19. ATROVENT [Concomitant]
  20. MUCOMYST [Concomitant]
     Dates: start: 19991130

REACTIONS (11)
  - BLOOD PH DECREASED [None]
  - BLOOD PH INCREASED [None]
  - DEHYDRATION [None]
  - HAEMODIALYSIS [None]
  - LETHARGY [None]
  - LUNG INFILTRATION [None]
  - POSTOPERATIVE RENAL FAILURE [None]
  - RENAL FAILURE ACUTE [None]
  - RESPIRATORY DISTRESS [None]
  - SEPSIS [None]
  - TRICUSPID VALVE INCOMPETENCE [None]
